FAERS Safety Report 5391100-0 (Version None)
Quarter: 2007Q3

REPORT INFORMATION
  Report Type: 
  Country: None (occurrence: None)
  Receive Date: 20070717
  Receipt Date: 20070705
  Transmission Date: 20080115
  Serious: No
  Sender: FDA-Public Use
  Company Number: 235310K07USA

PATIENT
  Age: 64 Year
  Sex: Female

DRUGS (4)
  1. REBIF [Suspect]
     Indication: MULTIPLE SCLEROSIS
     Dosage: 44 MCG, 3 IN 1 WEEKS, SUBCUTANEOUS
     Route: 058
     Dates: start: 20061023
  2. WELLBUTRIN [Suspect]
     Dosage: 100 MG, 2 IN 1 DAYS, ORAL
     Route: 048
     Dates: start: 20050101, end: 20070501
  3. AMANTADINE               (AMANTADINE /00055901/) [Concomitant]
  4. LISINOPRIL [Concomitant]

REACTIONS (6)
  - CONDITION AGGRAVATED [None]
  - FALL [None]
  - MULTIPLE SCLEROSIS [None]
  - NECK PAIN [None]
  - TREMOR [None]
  - URINARY TRACT INFECTION [None]
